FAERS Safety Report 9599232 (Version 1)
Quarter: 2013Q4

REPORT INFORMATION
  Report Type: Spontaneous
  Country: US (occurrence: US)
  Receive Date: 20131004
  Receipt Date: 20131004
  Transmission Date: 20140711
  Serious: No
  Sender: FDA-Public Use
  Company Number: US-AMGEN-USASP2013028060

PATIENT
  Age: 53 Year
  Sex: Female
  Weight: 75.74 kg

DRUGS (10)
  1. ENBREL [Suspect]
     Indication: PSORIASIS
     Dosage: 50 MG, 2 TIMES/WK
     Route: 058
     Dates: start: 20130323
  2. FUROSEMIDE [Concomitant]
     Dosage: 80 MG, UNK
  3. LIPITOR [Concomitant]
     Dosage: 20 MG, UNK
  4. REGLAN                             /00041901/ [Concomitant]
     Dosage: 10 MG, UNK
  5. LISINOPRIL [Concomitant]
     Dosage: 10 MG, UNK
  6. NEXIUM                             /01479302/ [Concomitant]
     Dosage: 40 MG, UNK
  7. CELEXA                             /00582602/ [Concomitant]
     Dosage: 10 MG, UNK
  8. VITAMIN D                          /00107901/ [Concomitant]
     Dosage: 400 UNK, UNK
  9. FOLIC ACID [Concomitant]
     Dosage: UNK
  10. ASPIRIN [Concomitant]
     Dosage: 81 MG, UNK

REACTIONS (4)
  - Injection site bruising [Not Recovered/Not Resolved]
  - Injection site erythema [Not Recovered/Not Resolved]
  - Injection site swelling [Unknown]
  - Injection site pain [Not Recovered/Not Resolved]
